FAERS Safety Report 7636843-0 (Version None)
Quarter: 2011Q3

REPORT INFORMATION
  Report Type: 
  Country: None (occurrence: None)
  Receive Date: 20110722
  Receipt Date: 20110722
  Transmission Date: 20111222
  Serious: Yes (Other)
  Sender: FDA-Public Use
  Company Number: None

PATIENT
  Sex: Female
  Weight: 86.1834 kg

DRUGS (1)
  1. ACTOS [Suspect]
     Indication: TYPE 2 DIABETES MELLITUS
     Dosage: 15 MG DAILY
     Dates: start: 20101115, end: 20110514

REACTIONS (3)
  - TRANSIENT ISCHAEMIC ATTACK [None]
  - TOOTH DISORDER [None]
  - HEADACHE [None]
